FAERS Safety Report 9409566 (Version 6)
Quarter: 2013Q4

REPORT INFORMATION
  Report Type: Report from Study
  Country: IL (occurrence: IL)
  Receive Date: 20130719
  Receipt Date: 20131018
  Transmission Date: 20140711
  Serious: Yes (Hospitalization)
  Sender: FDA-Public Use
  Company Number: PHHO2013IL009247

PATIENT
  Sex: 0

DRUGS (10)
  1. BLINDED ACZ885 [Suspect]
     Indication: TYPE 2 DIABETES MELLITUS
     Dosage: CODE NOT BROKEN
     Route: 058
     Dates: start: 20121115
  2. BLINDED PLACEBO [Suspect]
     Indication: TYPE 2 DIABETES MELLITUS
     Dosage: CODE NOT BROKEN
     Route: 058
     Dates: start: 20121115
  3. BLINDED ACZ885 [Suspect]
     Indication: ARTERIOSCLEROSIS
  4. BLINDED PLACEBO [Suspect]
     Indication: ARTERIOSCLEROSIS
  5. LIPITOR [Concomitant]
     Indication: HYPERLIPIDAEMIA
     Dosage: 80 MG, QD
     Dates: start: 201205
  6. ASPIRIN [Concomitant]
     Indication: MYOCARDIAL ISCHAEMIA
     Dosage: 100 MG, QD
     Dates: start: 201207
  7. RECITAL [Concomitant]
     Indication: PANIC DISORDER
     Dosage: 20 MG, QD
     Dates: start: 201205
  8. GLUCOPHAGE [Concomitant]
     Indication: DIABETES MELLITUS
     Dosage: 850 MG, QD
  9. SIMULECT [Concomitant]
     Indication: DIABETES MELLITUS
     Dosage: 50/850MGX1
  10. NORMITEN [Concomitant]
     Indication: MYOCARDIAL ISCHAEMIA
     Dosage: 12.5 MG, BID
     Dates: start: 201208

REACTIONS (1)
  - Furuncle [Recovered/Resolved]
